FAERS Safety Report 18107432 (Version 3)
Quarter: 2020Q3

REPORT INFORMATION
  Report Type: Spontaneous
  Country: JP (occurrence: JP)
  Receive Date: 20200803
  Receipt Date: 20200914
  Transmission Date: 20201103
  Serious: Yes (Death)
  Sender: FDA-Public Use
  Company Number: JP-SUNOVION-2020DSP008898

PATIENT
  Age: 4 Decade
  Sex: Female

DRUGS (2)
  1. SYCREST [Concomitant]
     Active Substance: ASENAPINE MALEATE
     Dosage: UNK
     Route: 065
  2. LATUDA [Suspect]
     Active Substance: LURASIDONE HYDROCHLORIDE
     Indication: SCHIZOPHRENIA
     Dosage: UNK, 20?80MG
     Route: 048

REACTIONS (1)
  - Victim of homicide [Fatal]
